FAERS Safety Report 9699893 (Version 2)
Quarter: 2013Q4

REPORT INFORMATION
  Report Type: Spontaneous
  Country: HU (occurrence: HU)
  Receive Date: 20131121
  Receipt Date: 20131129
  Transmission Date: 20140711
  Serious: Yes (Hospitalization)
  Sender: FDA-Public Use
  Company Number: CHNY2013HU002568

PATIENT
  Sex: Female

DRUGS (4)
  1. MEBUCAINE UNKNOWN [Suspect]
     Indication: PHARYNGITIS
     Dosage: UNK
     Route: 002
     Dates: start: 201004
  2. AMOXICILLIN [Suspect]
  3. RILMENIDINE [Concomitant]
     Indication: HYPERTENSION
  4. AMLODIPINE [Concomitant]
     Indication: HYPERTENSION

REACTIONS (8)
  - Still^s disease adult onset [Recovered/Resolved]
  - Rash [Recovered/Resolved]
  - Arthralgia [Recovered/Resolved]
  - Nausea [Recovered/Resolved]
  - Vomiting [Recovered/Resolved]
  - Jaundice [Recovered/Resolved]
  - Body temperature increased [Recovered/Resolved]
  - Hypersensitivity [Recovered/Resolved]
